FAERS Safety Report 7132691-9 (Version None)
Quarter: 2010Q4

REPORT INFORMATION
  Report Type: 
  Country: None (occurrence: None)
  Receive Date: 20101117
  Receipt Date: 20101101
  Transmission Date: 20110411
  Serious: Yes (Other)
  Sender: FDA-Public Use
  Company Number: US-1183773

PATIENT
  Age: 73 Year
  Sex: Male
  Weight: 72.5755 kg

DRUGS (9)
  1. PATANASE [Suspect]
     Indication: TINNITUS
     Dosage: (2 UG BID NASAL)
     Route: 045
     Dates: start: 20101014, end: 20101016
  2. LANTUS [Concomitant]
  3. NATEGLINIDE [Concomitant]
  4. 3M METFORMIN [Concomitant]
  5. ADCO-SIMVASTATIN [Concomitant]
  6. DIOVAN HCT [Concomitant]
  7. HYDROCHLOROTHIAZIDE [Concomitant]
  8. ASPIRIN [Concomitant]
  9. MULTI-VITAMIN [Concomitant]

REACTIONS (1)
  - CHEST PAIN [None]
